FAERS Safety Report 9824160 (Version 1)
Quarter: 2014Q1

REPORT INFORMATION
  Report Type: Spontaneous
  Country: US (occurrence: US)
  Receive Date: 20140116
  Receipt Date: 20140116
  Transmission Date: 20141002
  Serious: Yes (Hospitalization, Other)
  Sender: FDA-Public Use
  Company Number: US-GLAXOSMITHKLINE-A1056393A

PATIENT
  Sex: Male

DRUGS (2)
  1. BREO ELLIPTA [Suspect]
     Indication: EMPHYSEMA
     Route: 055
     Dates: start: 201312
  2. NO CONCURRENT MEDICATION [Concomitant]

REACTIONS (4)
  - Lung disorder [Unknown]
  - Computerised tomogram abnormal [Unknown]
  - Oropharyngeal pain [Unknown]
  - Dyspnoea [Unknown]
